FAERS Safety Report 13991334 (Version 1)
Quarter: 2017Q3

REPORT INFORMATION
  Report Type: Spontaneous
  Country: US (occurrence: US)
  Receive Date: 20170920
  Receipt Date: 20170920
  Transmission Date: 20171128
  Serious: No
  Sender: FDA-Public Use
  Company Number: US-009507513-1709USA005539

PATIENT
  Age: 35 Year
  Sex: Male

DRUGS (3)
  1. DIACETYLMORPHINE [Suspect]
     Active Substance: DIAMORPHINE
     Dosage: UNK
     Dates: start: 2017
  2. ZEPATIER [Suspect]
     Active Substance: ELBASVIR\GRAZOPREVIR
     Indication: HEPATITIS C
     Dosage: 1 TABLET (100/50MG) ONCE A DAY
     Route: 048
     Dates: start: 2017
  3. PHENOL. [Suspect]
     Active Substance: PHENOL
     Dosage: UNK
     Dates: start: 2017

REACTIONS (4)
  - Vomiting [Recovered/Resolved]
  - Retching [Recovered/Resolved]
  - Nausea [Recovered/Resolved]
  - Fatigue [Recovered/Resolved]

NARRATIVE: CASE EVENT DATE: 201709
